FAERS Safety Report 4908376-3 (Version None)
Quarter: 2006Q1

REPORT INFORMATION
  Report Type: 
  Country: None (occurrence: None)
  Receive Date: 20060210
  Receipt Date: 20060201
  Transmission Date: 20060701
  Serious: Yes (Hospitalization)
  Sender: FDA-Public Use
  Company Number: 2006AP00544

PATIENT
  Age: 14176 Day
  Sex: Female

DRUGS (1)
  1. GOSERELIN ACETATE [Suspect]
     Indication: UTERINE DISORDER
     Route: 058
     Dates: start: 20041209

REACTIONS (3)
  - ACUTE MYOCARDIAL INFARCTION [None]
  - TROPONIN INCREASED [None]
  - VENTRICULAR TACHYCARDIA [None]
